FAERS Safety Report 18213320 (Version 4)
Quarter: 2020Q4

REPORT INFORMATION
  Report Type: Report from Study
  Country: None (occurrence: DE)
  Receive Date: 20200831
  Receipt Date: 20201028
  Transmission Date: 20210113
  Serious: Yes (Hospitalization)
  Sender: FDA-Public Use
  Company Number: DE-ABBVIE-20K-062-3526561-00

PATIENT
  Age: 75 Year
  Sex: Female

DRUGS (5)
  1. CORTISON [Suspect]
     Active Substance: CORTISONE ACETATE
     Indication: RHEUMATOID ARTHRITIS
     Route: 048
     Dates: start: 2000, end: 20200810
  2. CORTISON [Suspect]
     Active Substance: CORTISONE ACETATE
     Route: 048
     Dates: start: 20200814, end: 2020
  3. CORTISON [Suspect]
     Active Substance: CORTISONE ACETATE
     Route: 048
     Dates: start: 2020
  4. CORTISON [Suspect]
     Active Substance: CORTISONE ACETATE
     Route: 048
     Dates: start: 20200811, end: 20200813
  5. RINVOQ [Suspect]
     Active Substance: UPADACITINIB
     Indication: RHEUMATOID ARTHRITIS
     Route: 048
     Dates: start: 20200810, end: 2020

REACTIONS (5)
  - Pain in extremity [Not Recovered/Not Resolved]
  - Headache [Recovering/Resolving]
  - Hyperhidrosis [Recovering/Resolving]
  - Asthenia [Recovering/Resolving]
  - Feeling abnormal [Recovered/Resolved]

NARRATIVE: CASE EVENT DATE: 2020
